FAERS Safety Report 7057492-1 (Version None)
Quarter: 2010Q4

REPORT INFORMATION
  Report Type: 
  Country: None (occurrence: None)
  Receive Date: 20101022
  Receipt Date: 20101013
  Transmission Date: 20110411
  Serious: Yes (Other)
  Sender: FDA-Public Use
  Company Number: JP-PFIZER INC-2010129696

PATIENT
  Age: 32 Year
  Sex: Male

DRUGS (1)
  1. METHYLPREDNISOLONE SODIUM SUCCINATE [Suspect]
     Indication: IMMUNOSUPPRESSANT DRUG THERAPY
     Dosage: UNK

REACTIONS (4)
  - ACINETOBACTER INFECTION [None]
  - CONTINUOUS HAEMODIAFILTRATION [None]
  - MULTIPLE-DRUG RESISTANCE [None]
  - SEPSIS [None]
